FAERS Safety Report 10476645 (Version 2)
Quarter: 2014Q4

REPORT INFORMATION
  Report Type: Spontaneous
  Country: DE (occurrence: DE)
  Receive Date: 20140925
  Receipt Date: 20141120
  Transmission Date: 20150528
  Serious: Yes (Disabling, Other)
  Sender: FDA-Public Use
  Company Number: DE-SA-2014SA130699

PATIENT
  Sex: Male

DRUGS (1)
  1. AUBAGIO [Suspect]
     Active Substance: TERIFLUNOMIDE
     Indication: MULTIPLE SCLEROSIS
     Route: 048
     Dates: start: 20140328, end: 20140704

REACTIONS (18)
  - Arthralgia [Recovering/Resolving]
  - Back pain [Recovering/Resolving]
  - Alanine aminotransferase increased [Not Recovered/Not Resolved]
  - Myalgia [Recovering/Resolving]
  - Pancreatic enzymes increased [Not Recovered/Not Resolved]
  - Pyrexia [Recovering/Resolving]
  - Diverticulum [Unknown]
  - Liver function test abnormal [Unknown]
  - Lymphadenopathy mediastinal [Unknown]
  - Blood creatine phosphokinase increased [Not Recovered/Not Resolved]
  - Red blood cell sedimentation rate increased [Unknown]
  - Pain in extremity [Recovering/Resolving]
  - Walking aid user [Unknown]
  - Leukocytosis [Unknown]
  - Bone pain [Unknown]
  - Faecaloma [Unknown]
  - Hepatic steatosis [Unknown]
  - Hilar lymphadenopathy [Unknown]

NARRATIVE: CASE EVENT DATE: 20140704
